FAERS Safety Report 17301250 (Version 1)
Quarter: 2020Q1

REPORT INFORMATION
  Report Type: Spontaneous
  Country: TR (occurrence: TR)
  Receive Date: 20200122
  Receipt Date: 20200122
  Transmission Date: 20200409
  Serious: Yes (Other)
  Sender: FDA-Public Use
  Company Number: NVSC2020TR014524

PATIENT

DRUGS (2)
  1. TRILEPTAL [Suspect]
     Active Substance: OXCARBAZEPINE
     Indication: FOETAL EXPOSURE DURING PREGNANCY
     Dosage: 1.5 DF, QD (900 MG MORNING AND EVENING)
     Route: 064
  2. FRISIUM [Concomitant]
     Active Substance: CLOBAZAM
     Indication: FOETAL EXPOSURE DURING PREGNANCY
     Dosage: UNK
     Route: 064

REACTIONS (1)
  - Premature baby [Unknown]
